FAERS Safety Report 5164817-0 (Version None)
Quarter: 2006Q4

REPORT INFORMATION
  Report Type: 
  Country: None (occurrence: None)
  Receive Date: 20061205
  Receipt Date: 20061027
  Transmission Date: 20070319
  Serious: Yes (Other)
  Sender: FDA-Public Use
  Company Number: 2006UW20822

PATIENT
  Age: 64 Year
  Sex: Female
  Weight: 55 kg

DRUGS (4)
  1. ARIMIDEX [Suspect]
     Indication: BREAST CANCER FEMALE
     Route: 048
     Dates: start: 20051026, end: 20060818
  2. DARVOCET [Concomitant]
  3. CHLORDIAZEPOXIDE [Concomitant]
  4. SKELAXIN [Concomitant]

REACTIONS (8)
  - ANXIETY [None]
  - BLOOD ALKALINE PHOSPHATASE INCREASED [None]
  - HYPERTHYROIDISM [None]
  - PALPITATIONS [None]
  - PANIC ATTACK [None]
  - PLATELET COUNT DECREASED [None]
  - TREMOR [None]
  - WHITE BLOOD CELL COUNT DECREASED [None]
